FAERS Safety Report 14970456 (Version 1)
Quarter: 2018Q2

REPORT INFORMATION
  Report Type: Report from Study
  Country: US (occurrence: US)
  Receive Date: 20180604
  Receipt Date: 20180604
  Transmission Date: 20180711
  Serious: Yes (Other)
  Sender: FDA-Public Use
  Company Number: US-MALLINCKRODT-T201800148

PATIENT
  Age: 61 Year
  Sex: Female

DRUGS (8)
  1. REPOSITORY CORTICOTROPIN INJECTION [Suspect]
     Active Substance: CORTICOTROPIN
     Dosage: 80 UNITS / 1 ML 1 TIME WEEKLY
     Route: 058
     Dates: start: 20180227, end: 2018
  2. REPOSITORY CORTICOTROPIN INJECTION [Suspect]
     Active Substance: CORTICOTROPIN
     Dosage: 80 UNITS / 1 ML TWICE A WEEK (WEDNESDAYS AND SOMETIMES FRIDAYS)
     Route: 058
     Dates: start: 2018, end: 2018
  3. ENBREL [Concomitant]
     Active Substance: ETANERCEPT
     Indication: PRODUCT USED FOR UNKNOWN INDICATION
     Dosage: TUESDAY
     Route: 065
  4. METHOTREXATE. [Concomitant]
     Active Substance: METHOTREXATE
     Indication: PRODUCT USED FOR UNKNOWN INDICATION
     Dosage: MONDAY
     Route: 065
  5. REPOSITORY CORTICOTROPIN INJECTION [Suspect]
     Active Substance: CORTICOTROPIN
     Dosage: 80 UNITS / 1 ML 1 TIME WEEKLY
     Route: 058
     Dates: start: 201804
  6. REPOSITORY CORTICOTROPIN INJECTION [Suspect]
     Active Substance: CORTICOTROPIN
     Dosage: 80 UNITS / 1 ML ONCE WEEKLY
     Route: 058
     Dates: start: 2018, end: 2018
  7. REPOSITORY CORTICOTROPIN INJECTION [Suspect]
     Active Substance: CORTICOTROPIN
     Dosage: 80 UNITS / 1 ML , TWICE WEEKLY
     Route: 058
     Dates: start: 201803, end: 2018
  8. REPOSITORY CORTICOTROPIN INJECTION [Suspect]
     Active Substance: CORTICOTROPIN
     Indication: SYSTEMIC LUPUS ERYTHEMATOSUS
     Dosage: 80 UNITS / 1 ML 1 TIME WEEKLY
     Route: 058
     Dates: start: 20140101, end: 20171101

REACTIONS (22)
  - Rheumatoid arthritis [Not Recovered/Not Resolved]
  - Lyme disease [Unknown]
  - Tonsillar disorder [Recovering/Resolving]
  - Asthma [Not Recovered/Not Resolved]
  - Abdominal distension [Recovering/Resolving]
  - Hyperhidrosis [Unknown]
  - Tonsillectomy [Recovering/Resolving]
  - Asthenia [Not Recovered/Not Resolved]
  - Skin disorder [Unknown]
  - Food craving [Unknown]
  - Nasopharyngitis [Recovering/Resolving]
  - Skin tightness [Not Recovered/Not Resolved]
  - Immunodeficiency [Unknown]
  - Cushingoid [Unknown]
  - Fatigue [Not Recovered/Not Resolved]
  - Elbow operation [Recovering/Resolving]
  - Fluid retention [Unknown]
  - Rash [Not Recovered/Not Resolved]
  - Drug dose omission [Unknown]
  - Hypotension [Not Recovered/Not Resolved]
  - Pain [Not Recovered/Not Resolved]
  - Musculoskeletal discomfort [Unknown]

NARRATIVE: CASE EVENT DATE: 20140101
